FAERS Safety Report 5094716-4 (Version None)
Quarter: 2006Q3

REPORT INFORMATION
  Report Type: 
  Country: None (occurrence: None)
  Receive Date: 20060731
  Receipt Date: 20060411
  Transmission Date: 20061208
  Serious: No
  Sender: FDA-Public Use
  Company Number: 2006PV011946

PATIENT
  Age: 64 Year
  Sex: Male
  Weight: 135.1719 kg

DRUGS (3)
  1. BYETTA [Suspect]
     Indication: DIABETES MELLITUS NON-INSULIN-DEPENDENT
  2. GLUCOPHAGE [Concomitant]
  3. AVANDIA [Concomitant]

REACTIONS (1)
  - WEIGHT DECREASED [None]
